FAERS Safety Report 7179607-7 (Version None)
Quarter: 2010Q4

REPORT INFORMATION
  Report Type: 
  Country: None (occurrence: None)
  Receive Date: 20101221
  Receipt Date: 20100520
  Transmission Date: 20110411
  Serious: Yes (Other)
  Sender: FDA-Public Use
  Company Number: DE-ROCHE-703449

PATIENT
  Sex: Female

DRUGS (5)
  1. BONIVA [Suspect]
     Indication: OSTEOPOROSIS
     Dosage: AT 3 MG/ML
     Route: 042
     Dates: start: 20090514
  2. CALCILAC KT [Concomitant]
     Indication: OSTEOPOROSIS
     Route: 048
  3. TEBONIN [Concomitant]
     Route: 048
  4. OMEP [Concomitant]
     Route: 048
  5. ACIC [Concomitant]
     Dates: start: 20090728

REACTIONS (1)
  - MACULAR DEGENERATION [None]
